FAERS Safety Report 10310292 (Version 1)
Quarter: 2014Q3

REPORT INFORMATION
  Report Type: Spontaneous
  Country: US (occurrence: US)
  Receive Date: 20140717
  Receipt Date: 20140717
  Transmission Date: 20150326
  Serious: No
  Sender: FDA-Public Use
  Company Number: US-PFIZER INC-2014197226

PATIENT
  Age: 68 Year
  Sex: Female

DRUGS (2)
  1. DILANTIN-125 [Suspect]
     Active Substance: PHENYTOIN
     Dosage: UNK
  2. CARBAMAZEPINE. [Suspect]
     Active Substance: CARBAMAZEPINE
     Dosage: UNK

REACTIONS (1)
  - Drug hypersensitivity [Unknown]
